FAERS Safety Report 8764160 (Version 3)
Quarter: 2012Q4

REPORT INFORMATION
  Report Type: 
  Country: BR (occurrence: BR)
  Receive Date: 20120831
  Receipt Date: 20121213
  Transmission Date: 20130627
  Serious: Yes (Hospitalization, Disabling)
  Sender: FDA-Public Use
  Company Number: BR-BRISTOL-MYERS SQUIBB COMPANY-16896383

PATIENT
  Age: 58 Year
  Sex: Male

DRUGS (1)
  1. ORENCIA FOR INJ [Suspect]
     Indication: RHEUMATOID ARTHRITIS
     Dosage: No of inf:3
     Route: 042

REACTIONS (4)
  - Retinitis viral [Recovering/Resolving]
  - Blindness [Recovering/Resolving]
  - Pain [Unknown]
  - Gait disturbance [Unknown]
